FAERS Safety Report 23123868 (Version 4)
Quarter: 2023Q4

REPORT INFORMATION
  Report Type: Spontaneous
  Country: US (occurrence: US)
  Receive Date: 20231030
  Receipt Date: 20231127
  Transmission Date: 20240109
  Serious: Yes (Hospitalization)
  Sender: FDA-Public Use
  Company Number: CN-CHEPLA-2023013551

PATIENT
  Age: 66 Year
  Sex: Male

DRUGS (12)
  1. CAPECITABINE [Suspect]
     Active Substance: CAPECITABINE
     Indication: Adenocarcinoma gastric
     Dosage: THE MOST RECENT DOSE OF CAPECITABINE PRIOR TO SAE ONSET WAS 1000 MG/M2/BID IN CYCLE 2 ON 10-OCT-2023
     Route: 048
     Dates: start: 20230816, end: 20231010
  2. DKN-01 [Suspect]
     Active Substance: DKN-01
     Indication: Adenocarcinoma gastric
  3. TISLELIZUMAB [Suspect]
     Active Substance: TISLELIZUMAB
     Indication: Adenocarcinoma gastric
     Dosage: MOST RECENT DOSE OF TISLELIZUMAB PRIOR TO SAE ONSET WAS 200 MG IN CYCLE 2 ON 06-OCT-2023
     Route: 042
     Dates: start: 20230906
  4. OXALIPLATIN [Suspect]
     Active Substance: OXALIPLATIN
     Indication: Adenocarcinoma gastric
     Dosage: THE MOST RECENT DOSE OF OXALIPLATIN PRIOR TO SAE ONSET WAS 130 MG/M2 IN CYCLE 2 ON 06-OCT-2023
     Route: 042
     Dates: start: 20230816
  5. AMLODIPINE [Concomitant]
     Active Substance: AMLODIPINE BESYLATE
  6. COZAAR [Concomitant]
     Active Substance: LOSARTAN POTASSIUM
  7. JANUVIA [Concomitant]
     Active Substance: SITAGLIPTIN PHOSPHATE
  8. ATIVAN [Concomitant]
     Active Substance: LORAZEPAM
  9. QUETIAPINE [Concomitant]
     Active Substance: QUETIAPINE
  10. LOPERAMIDE [Concomitant]
     Active Substance: LOPERAMIDE
  11. MOSAPRIDE [Concomitant]
     Active Substance: MOSAPRIDE
  12. OMEPRAZOLE [Concomitant]
     Active Substance: OMEPRAZOLE

REACTIONS (1)
  - Delirium [Recovered/Resolved]

NARRATIVE: CASE EVENT DATE: 20231008
